FAERS Safety Report 15900908 (Version 3)
Quarter: 2019Q1

REPORT INFORMATION
  Report Type: Spontaneous
  Country: JP (occurrence: JP)
  Receive Date: 20190201
  Receipt Date: 20190308
  Transmission Date: 20190417
  Serious: Yes (Life-Threatening, Hospitalization, Other)
  Sender: FDA-Public Use
  Company Number: JP-009507513-1901JPN002642J

PATIENT
  Age: 71 Year
  Sex: Male
  Weight: 49 kg

DRUGS (2)
  1. KEYTRUDA [Suspect]
     Active Substance: PEMBROLIZUMAB
     Indication: PLEURAL MESOTHELIOMA
     Dosage: 200 MILLIGRAM, Q3W
     Route: 041
     Dates: start: 20180406, end: 20180914
  2. LANSOPRAZOLE. [Suspect]
     Active Substance: LANSOPRAZOLE
     Dosage: UNK
     Route: 065

REACTIONS (6)
  - Cholestasis [Recovering/Resolving]
  - Cholangitis sclerosing [Not Recovered/Not Resolved]
  - Pyrexia [Recovered/Resolved]
  - Enterocolitis [Recovering/Resolving]
  - Malignant neoplasm progression [Unknown]
  - Diarrhoea [Recovered/Resolved]

NARRATIVE: CASE EVENT DATE: 201809
